FAERS Safety Report 8867535 (Version 1)
Quarter: 2012Q4

REPORT INFORMATION
  Report Type: 
  Country: US (occurrence: US)
  Receive Date: 20121025
  Receipt Date: 20121025
  Transmission Date: 20130627
  Serious: No
  Sender: FDA-Public Use
  Company Number: US-AMGEN-USASP2012017153

PATIENT
  Sex: Female
  Weight: 104.31 kg

DRUGS (6)
  1. ENBREL [Suspect]
     Indication: PRODUCT USED FOR UNKNOWN INDICATION
     Dosage: 50 mg, qwk
     Route: 058
  2. METHOTREXATE [Concomitant]
     Dosage: 2.5 mg, UNK
  3. MULTIVITAMIN                       /00097801/ [Concomitant]
  4. MELOXICAM [Concomitant]
     Dosage: 15 mg, UNK
  5. FISH OIL [Concomitant]
  6. FOLIC ACID [Concomitant]
     Dosage: 1 mg, UNK

REACTIONS (2)
  - Injection site irritation [Unknown]
  - Injection site erythema [Unknown]
